FAERS Safety Report 6140596-5 (Version None)
Quarter: 2009Q1

REPORT INFORMATION
  Report Type: 
  Country: None (occurrence: None)
  Receive Date: 20090331
  Receipt Date: 20090325
  Transmission Date: 20090719
  Serious: Yes (Death, Hospitalization)
  Sender: FDA-Public Use
  Company Number: 2008SP002231

PATIENT
  Age: 55 Year
  Sex: Female
  Weight: 63 kg

DRUGS (6)
  1. PEGETRON (PEGINTERFERON ALFA-2B W/ RIBAVIRIN) (PEGYLATED INTERFERON AL [Suspect]
     Indication: HEPATITIS C
     Dosage: 80 MCG; QW; SC 400 MCG; QW; SC
     Route: 058
     Dates: start: 20070101, end: 20070101
  2. AZATHIOPRINE [Concomitant]
  3. PREDNISONE TAB [Concomitant]
  4. FOLIC ACID [Concomitant]
  5. GABAPENTIN [Concomitant]
  6. FUROSEMIDE [Concomitant]

REACTIONS (3)
  - FEBRILE NEUTROPENIA [None]
  - HYPOKALAEMIA [None]
  - PNEUMONIA [None]
